FAERS Safety Report 7580092-1 (Version None)
Quarter: 2011Q2

REPORT INFORMATION
  Report Type: 
  Country: None (occurrence: None)
  Receive Date: 20110629
  Receipt Date: 20110617
  Transmission Date: 20111010
  Serious: Yes (Disabling, Other)
  Sender: FDA-Public Use
  Company Number: US-ELI_LILLY_AND_COMPANY-US201106007381

PATIENT
  Sex: Male

DRUGS (1)
  1. ZYPREXA [Suspect]

REACTIONS (2)
  - INJURY [None]
  - PARKINSON'S DISEASE [None]
